FAERS Safety Report 9756051 (Version 1)
Quarter: 2013Q4

REPORT INFORMATION
  Report Type: Spontaneous
  Country: FR (occurrence: FR)
  Receive Date: 20131213
  Receipt Date: 20131213
  Transmission Date: 20140711
  Serious: Yes (Hospitalization)
  Sender: FDA-Public Use
  Company Number: FR-GLAXOSMITHKLINE-B0950253A

PATIENT
  Age: 66 Year
  Sex: Female

DRUGS (3)
  1. FLIXOTIDE [Suspect]
     Indication: ASTHMA
     Dosage: 2PUFF TWICE PER DAY
     Route: 055
     Dates: start: 20021001
  2. SPORANOX [Suspect]
     Indication: BRONCHOPULMONARY ASPERGILLOSIS
     Dosage: 300MG PER DAY
     Route: 048
     Dates: start: 20121015, end: 20130628
  3. SOLUPRED [Suspect]
     Indication: ASTHMA
     Route: 048
     Dates: start: 20120801, end: 20121112

REACTIONS (16)
  - Cushing^s syndrome [Recovering/Resolving]
  - Drug interaction [Unknown]
  - Central obesity [Recovering/Resolving]
  - Cushingoid [Recovering/Resolving]
  - Muscle atrophy [Unknown]
  - Haematoma [Recovering/Resolving]
  - Skin atrophy [Recovering/Resolving]
  - Neck deformity [Unknown]
  - Asthenia [Unknown]
  - Gait disturbance [Unknown]
  - Hyperadrenocorticism [Recovering/Resolving]
  - Myopathy [Unknown]
  - Osteoporotic fracture [Unknown]
  - Lung infection [Unknown]
  - Dermatitis bullous [Recovering/Resolving]
  - Blood cortisol decreased [Unknown]
